FAERS Safety Report 5708187-5 (Version None)
Quarter: 2008Q2

REPORT INFORMATION
  Report Type: 
  Country: None (occurrence: None)
  Receive Date: 20080414
  Receipt Date: 20080328
  Transmission Date: 20081010
  Serious: Yes (Life-Threatening, Hospitalization)
  Sender: FDA-Public Use
  Company Number: 08-000551

PATIENT
  Age: 85 Year
  Sex: Female
  Weight: 61.7 kg

DRUGS (3)
  1. DOVONEX [Suspect]
     Indication: PSORIASIS
     Dosage: 0.005%; QD, TOPICAL
     Route: 061
     Dates: start: 20020403, end: 20020101
  2. CALCIUM LACTATE(CALCIUM LACTATE) [Suspect]
     Indication: OSTEOPOROSIS PROPHYLAXIS
     Dates: start: 20020101, end: 20020101
  3. CALCIUM LACTATE(CALCIUM LACTATE) [Suspect]
     Indication: SUPPLEMENTATION THERAPY
     Dates: start: 20020101, end: 20020101

REACTIONS (11)
  - ANAEMIA [None]
  - ANOREXIA [None]
  - BLOOD PRESSURE DECREASED [None]
  - CARDIOMEGALY [None]
  - DEHYDRATION [None]
  - DEPRESSED LEVEL OF CONSCIOUSNESS [None]
  - DRY MOUTH [None]
  - HYPERCALCAEMIA [None]
  - HYPERNATRAEMIA [None]
  - LEUKOCYTOSIS [None]
  - RENAL FAILURE ACUTE [None]
